FAERS Safety Report 4673295-7 (Version None)
Quarter: 2005Q2

REPORT INFORMATION
  Report Type: 
  Country: None (occurrence: None)
  Receive Date: 20050524
  Receipt Date: 20050524
  Transmission Date: 20051028
  Serious: No
  Sender: FDA-Public Use
  Company Number: None

PATIENT
  Sex: Male
  Weight: 127.0072 kg

DRUGS (10)
  1. HEPARIN [Suspect]
     Indication: THROMBOSIS PROPHYLAXIS
     Dosage: 25,000 UNITS 1400U/HR INTRAVENOUS
     Route: 042
     Dates: start: 20050215, end: 20050217
  2. APAP TAB [Concomitant]
  3. ALBUTEROL [Concomitant]
  4. ASPIRIN [Concomitant]
  5. COLACE [Concomitant]
  6. PEPCID [Concomitant]
  7. INSULIN [Concomitant]
  8. METOPROLOL [Concomitant]
  9. PROPOFOL [Concomitant]
  10. SIMVASTATIN [Concomitant]

REACTIONS (1)
  - HEPARIN-INDUCED THROMBOCYTOPENIA [None]
